FAERS Safety Report 8372865-2 (Version None)
Quarter: 2012Q2

REPORT INFORMATION
  Report Type: 
  Country: None (occurrence: None)
  Receive Date: 20120521
  Receipt Date: 20120515
  Transmission Date: 20120825
  Serious: Yes (Death, Hospitalization)
  Sender: FDA-Public Use
  Company Number: BR-BAYER-2012-047887

PATIENT
  Age: 31 Year
  Sex: Male

DRUGS (1)
  1. CIPROFLOXACIN [Suspect]
     Indication: RESPIRATORY TRACT INFECTION
     Dosage: UNK

REACTIONS (1)
  - DRUG RESISTANCE [None]
